FAERS Safety Report 6955374-4 (Version None)
Quarter: 2010Q3

REPORT INFORMATION
  Report Type: 
  Country: None (occurrence: None)
  Receive Date: 20100830
  Receipt Date: 20091123
  Transmission Date: 20110219
  Serious: No
  Sender: FDA-Public Use
  Company Number: US-MYLANLABS-2009S1020400

PATIENT
  Age: 73 Year
  Sex: Male

DRUGS (8)
  1. LISINOPRIL [Suspect]
     Indication: HYPERTENSION
     Route: 048
     Dates: start: 20091110
  2. LASIX [Concomitant]
     Indication: FLUID RETENTION
     Dosage: TAKES 20MG EVERY M-W-F
     Route: 048
  3. ASPIRIN [Concomitant]
     Route: 048
  4. ZETIA [Concomitant]
     Indication: LIPIDS INCREASED
     Route: 048
  5. ISOSORBIDE [Concomitant]
     Indication: CORONARY ARTERY DISEASE
     Route: 048
  6. LEVEMIR [Concomitant]
     Indication: DIABETES MELLITUS
     Route: 058
  7. FISH OIL [Concomitant]
     Indication: LIPIDS INCREASED
     Route: 048
  8. DILAUDID [Concomitant]
     Indication: PAIN
     Route: 048

REACTIONS (2)
  - BLOOD PRESSURE INCREASED [None]
  - DRUG INEFFECTIVE [None]
